FAERS Safety Report 7081288-8 (Version None)
Quarter: 2010Q4

REPORT INFORMATION
  Report Type: 
  Country: None (occurrence: None)
  Receive Date: 20101103
  Receipt Date: 20101025
  Transmission Date: 20110411
  Serious: Yes (Hospitalization)
  Sender: FDA-Public Use
  Company Number: US-JNJFOC-20100903597

PATIENT
  Sex: Female
  Weight: 64.41 kg

DRUGS (8)
  1. STELARA [Suspect]
     Indication: DERMATITIS ATOPIC
     Route: 058
  2. STELARA [Suspect]
     Route: 058
  3. STELARA [Suspect]
     Indication: PSORIASIS
     Route: 058
  4. STELARA [Suspect]
     Route: 058
  5. ALBUTEROL [Concomitant]
     Indication: ASTHMA
  6. ADVAIR DISKUS 100/50 [Concomitant]
     Indication: ASTHMA
     Route: 055
  7. VALTREX [Concomitant]
  8. MOTRIN [Concomitant]

REACTIONS (2)
  - BLOOD CHOLESTEROL INCREASED [None]
  - MYOCARDIAL INFARCTION [None]
